FAERS Safety Report 21033408 (Version 19)
Quarter: 2023Q1

REPORT INFORMATION
  Report Type: Report from Study
  Country: AR (occurrence: AR)
  Receive Date: 20220701
  Receipt Date: 20230214
  Transmission Date: 20230418
  Serious: Yes (Hospitalization)
  Sender: FDA-Public Use
  Company Number: AR-AMGEN-ARGCT2022111863

PATIENT
  Age: 7 Year
  Sex: Male

DRUGS (10)
  1. CARFILZOMIB [Suspect]
     Active Substance: CARFILZOMIB
     Indication: Acute lymphocytic leukaemia
     Dosage: 44.8 MILLIGRAM
     Route: 040
     Dates: start: 20220607
  2. CARFILZOMIB [Suspect]
     Active Substance: CARFILZOMIB
     Dosage: 56 MILLIGRAM/SQ. METER
     Route: 040
     Dates: start: 20220622
  3. DEXAMETHASONE [Concomitant]
     Active Substance: DEXAMETHASONE
     Indication: Acute lymphocytic leukaemia
     Dosage: 2.4 MILLIGRAM
     Route: 037
     Dates: start: 20220607
  4. OMEPRAZOLE [Concomitant]
     Active Substance: OMEPRAZOLE
     Dosage: 20 MILLIGRAM
     Route: 048
     Dates: start: 20220605, end: 20220822
  5. VINCRISTINE [Concomitant]
     Active Substance: VINCRISTINE
     Indication: Acute lymphocytic leukaemia
     Dosage: 1.2 MILLIGRAM
     Dates: start: 20220607, end: 20220614
  6. DAUNORUBICIN [Concomitant]
     Active Substance: DAUNORUBICIN
     Indication: Acute lymphocytic leukaemia
     Dosage: 20 MILLIGRAM
     Dates: start: 20220607, end: 20220614
  7. CYTARABINE [Concomitant]
     Active Substance: CYTARABINE
     Dosage: 24 MILLIGRAM
     Route: 037
     Dates: start: 20220607
  8. HYDROCORTISONE [Concomitant]
     Active Substance: HYDROCORTISONE
     Dosage: 1 MILLIGRAM
     Route: 037
     Dates: start: 20220607, end: 20220607
  9. METHOTREXATE [Concomitant]
     Active Substance: METHOTREXATE
     Dosage: 12 MILLIGRAM
     Route: 037
     Dates: start: 20220607, end: 20220607
  10. DOXORUBICIN [Concomitant]
     Active Substance: DOXORUBICIN
     Dosage: 16.8 MILLIGRAM
     Dates: start: 20220614, end: 20220614

REACTIONS (3)
  - Dehydration [Recovered/Resolved]
  - Muscular weakness [Recovered/Resolved]
  - Thrombocytopenia [Recovered/Resolved]

NARRATIVE: CASE EVENT DATE: 20220627
